FAERS Safety Report 10038181 (Version 2)
Quarter: 2014Q2

REPORT INFORMATION
  Report Type: Spontaneous
  Country: AU (occurrence: AU)
  Receive Date: 20140326
  Receipt Date: 20140430
  Transmission Date: 20141212
  Serious: Yes (Hospitalization, Disabling)
  Sender: FDA-Public Use
  Company Number: AU-ASTRAZENECA-2014SE19475

PATIENT
  Age: 65 Year
  Sex: Female
  Weight: 67 kg

DRUGS (3)
  1. ARIMIDEX [Suspect]
     Route: 048
     Dates: start: 201402
  2. PARIET [Concomitant]
     Indication: GASTROOESOPHAGEAL REFLUX DISEASE
     Route: 048
     Dates: start: 201402
  3. PARIET [Concomitant]
     Indication: BARRETT^S OESOPHAGUS
     Route: 048
     Dates: start: 201402

REACTIONS (2)
  - Sleep disorder [Not Recovered/Not Resolved]
  - Hot flush [Not Recovered/Not Resolved]
